FAERS Safety Report 17813562 (Version 2)
Quarter: 2021Q2

REPORT INFORMATION
  Report Type: Report from Study
  Country: GR (occurrence: GR)
  Receive Date: 20200521
  Receipt Date: 20210604
  Transmission Date: 20210716
  Serious: Yes (Hospitalization)
  Sender: FDA-Public Use
  Company Number: GR-JNJFOC-20200520129

PATIENT
  Age: 29 Year
  Sex: Female
  Weight: 130 kg

DRUGS (7)
  1. STELARA [Suspect]
     Active Substance: USTEKINUMAB
  2. STELARA [Suspect]
     Active Substance: USTEKINUMAB
     Indication: CROHN^S DISEASE
     Route: 058
     Dates: start: 20200120, end: 20200727
  3. OMEPRAZOLE. [Concomitant]
     Active Substance: OMEPRAZOLE
  4. FILICINE [Concomitant]
     Active Substance: FOLIC ACID
  5. B12 [CYANOCOBALAMIN?TANNIN COMPLEX] [Concomitant]
  6. SERTRALINE [Concomitant]
     Active Substance: SERTRALINE HYDROCHLORIDE
  7. ETORICOXIB. [Concomitant]
     Active Substance: ETORICOXIB

REACTIONS (1)
  - Clostridium difficile infection [Recovered/Resolved]

NARRATIVE: CASE EVENT DATE: 20200508
